FAERS Safety Report 8796945 (Version 1)
Quarter: 2012Q4

REPORT INFORMATION
  Report Type: 
  Country: US (occurrence: US)
  Receive Date: 20120920
  Receipt Date: 20120920
  Transmission Date: 20130627
  Serious: Yes (Hospitalization)
  Sender: FDA-Public Use
  Company Number: PHEH2012US018022

PATIENT
  Sex: Female

DRUGS (2)
  1. COMTAN [Suspect]
  2. STALEVO [Suspect]

REACTIONS (1)
  - Pancreatitis [Unknown]
